FAERS Safety Report 5240138-2 (Version None)
Quarter: 2007Q1

REPORT INFORMATION
  Report Type: 
  Country: None (occurrence: None)
  Receive Date: 20070216
  Receipt Date: 20070208
  Transmission Date: 20070707
  Serious: Yes (Other)
  Sender: FDA-Public Use
  Company Number: US-PFIZER INC-2007010991

PATIENT

DRUGS (1)
  1. CHANTIX [Suspect]

REACTIONS (2)
  - AGEUSIA [None]
  - ANOSMIA [None]
